FAERS Safety Report 6968906-7 (Version None)
Quarter: 2010Q3

REPORT INFORMATION
  Report Type: 
  Country: None (occurrence: None)
  Receive Date: 20100903
  Receipt Date: 20100903
  Transmission Date: 20110219
  Serious: Yes (Hospitalization)
  Sender: FDA-Public Use
  Company Number: None

PATIENT
  Sex: Female
  Weight: 63.2 kg

DRUGS (3)
  1. PEG-L- ASPARAGINASE (K -H) [Suspect]
     Dosage: 4025 UNIT
  2. VINCRISTINE SULFATE [Suspect]
     Dosage: 4 MG
  3. METHOTREXATE [Suspect]
     Dosage: 330 MG

REACTIONS (8)
  - ABDOMINAL DISTENSION [None]
  - ABDOMINAL PAIN [None]
  - ANION GAP INCREASED [None]
  - BLOOD TRIGLYCERIDES INCREASED [None]
  - ILEUS [None]
  - NAUSEA [None]
  - PANCREATITIS [None]
  - VOMITING [None]
